FAERS Safety Report 7171049-3 (Version None)
Quarter: 2010Q4

REPORT INFORMATION
  Report Type: 
  Country: None (occurrence: None)
  Receive Date: 20101217
  Receipt Date: 20101206
  Transmission Date: 20110411
  Serious: Yes (Other)
  Sender: FDA-Public Use
  Company Number: GXKR2010US13794

PATIENT
  Age: 92 Year
  Sex: Female

DRUGS (1)
  1. PREDNISONE [Suspect]
     Indication: AUTOIMMUNE HEPATITIS
     Dosage: UNK
     Route: 065

REACTIONS (1)
  - KAPOSI'S SARCOMA [None]
